FAERS Safety Report 9651348 (Version 1)
Quarter: 2013Q4

REPORT INFORMATION
  Report Type: Spontaneous
  Country: US (occurrence: US)
  Receive Date: 20131029
  Receipt Date: 20131029
  Transmission Date: 20140711
  Serious: Yes (Death, Other)
  Sender: FDA-Public Use
  Company Number: US-NOVOPROD-390678

PATIENT
  Age: 44 Year
  Sex: Female

DRUGS (3)
  1. VICTOZA [Suspect]
     Indication: TYPE 2 DIABETES MELLITUS
     Dosage: UNK
     Route: 058
     Dates: start: 2010, end: 201209
  2. VICTOZA [Suspect]
     Dosage: UNK
     Route: 058
     Dates: start: 2010, end: 201209
  3. VICTOZA [Suspect]
     Dosage: UNK
     Route: 058
     Dates: start: 2010, end: 201209

REACTIONS (2)
  - Metastatic uterine cancer [Fatal]
  - Malaise [Unknown]
